FAERS Safety Report 10981318 (Version 1)
Quarter: 2015Q1

REPORT INFORMATION
  Report Type: Spontaneous
  Country: US (occurrence: None)
  Receive Date: 20150227
  Receipt Date: 20150227
  Transmission Date: 20150721
  Serious: Yes (Hospitalization)
  Sender: FDA-Public Use
  Company Number: LMI-2014-00358

PATIENT
  Age: 64 Year
  Sex: Male
  Weight: 97.52 kg

DRUGS (3)
  1. DEFINITY [Suspect]
     Active Substance: PERFLUTREN
     Indication: STRESS ECHOCARDIOGRAM
     Dosage: 2 CC X 1; 1.5 CC X 1 (1.5 CC DEFINITY DILUTED IN 8.5 CC PRESERVATIVE FREE NORMAL SALINE) (2 IN 1 D)
     Route: 040
     Dates: start: 20140814, end: 20140814
  2. LOVASTATIN. [Concomitant]
     Active Substance: LOVASTATIN
  3. LISINOPRIL. [Concomitant]
     Active Substance: LISINOPRIL

REACTIONS (9)
  - Rash erythematous [None]
  - Dizziness [None]
  - Hypersensitivity [None]
  - Chest discomfort [None]
  - Rash maculo-papular [None]
  - Eye swelling [None]
  - Dyspnoea [None]
  - Throat irritation [None]
  - Blood pressure systolic decreased [None]

NARRATIVE: CASE EVENT DATE: 20140814
